FAERS Safety Report 9522900 (Version 1)
Quarter: 2013Q3

REPORT INFORMATION
  Report Type: Spontaneous
  Country: US (occurrence: US)
  Receive Date: 20130913
  Receipt Date: 20130913
  Transmission Date: 20140515
  Serious: Yes (Hospitalization)
  Sender: FDA-Public Use
  Company Number: US-B.I. PHARMACEUTICALS,INC./RIDGEFIELD-2013-BI-23086BP

PATIENT
  Age: 75 Year
  Sex: Female
  Weight: 104 kg

DRUGS (6)
  1. SPIRIVA [Suspect]
     Indication: CHRONIC OBSTRUCTIVE PULMONARY DISEASE
     Dosage: 18 MCG
     Route: 055
     Dates: start: 2009
  2. KLOR-CON [Concomitant]
     Indication: BLOOD POTASSIUM DECREASED
     Dosage: 10 MEQ
     Route: 048
  3. WARFARIN [Concomitant]
     Indication: THROMBOSIS
     Dosage: 5 MG
     Route: 048
  4. ALBUTEROL [Concomitant]
     Indication: CHRONIC OBSTRUCTIVE PULMONARY DISEASE
     Dosage: 10 ML
     Route: 055
  5. FUROSEMIDE [Concomitant]
     Indication: FLUID RETENTION
     Dosage: 80 MG
     Route: 048
  6. ADVAIR [Concomitant]
     Indication: CHRONIC OBSTRUCTIVE PULMONARY DISEASE
     Dosage: STRENGTH: 500/50; DAILY DOSE: 1000/100
     Route: 055

REACTIONS (4)
  - Atrial fibrillation [Recovered/Resolved]
  - Pneumonia [Recovered/Resolved]
  - Pulmonary congestion [Not Recovered/Not Resolved]
  - Pneumonia [Recovered/Resolved]
